FAERS Safety Report 17238829 (Version 1)
Quarter: 2020Q1

REPORT INFORMATION
  Report Type: Spontaneous
  Country: US (occurrence: US)
  Receive Date: 20200105
  Receipt Date: 20200105
  Transmission Date: 20200409
  Serious: Yes (Life-Threatening, Other)
  Sender: FDA-Public Use
  Company Number: None

PATIENT
  Age: 45 Year
  Sex: Male
  Weight: 96.75 kg

DRUGS (11)
  1. MULTI VITAMIN [Concomitant]
     Active Substance: VITAMINS
  2. ELIQUIS [Concomitant]
     Active Substance: APIXABAN
  3. PROCHLORPERAZINE. [Concomitant]
     Active Substance: PROCHLORPERAZINE
  4. FAMOTIDINE. [Concomitant]
     Active Substance: FAMOTIDINE
  5. CHEMO TREATMENTS [Concomitant]
  6. RANITIDINE. [Suspect]
     Active Substance: RANITIDINE
     Indication: GASTROOESOPHAGEAL REFLUX DISEASE
     Route: 048
     Dates: start: 20171012, end: 20191205
  7. LORAZEPAM. [Concomitant]
     Active Substance: LORAZEPAM
  8. AMPLODINE [Concomitant]
  9. ONDANSETRON [Concomitant]
     Active Substance: ONDANSETRON
  10. ZOLPIDEM [Concomitant]
     Active Substance: ZOLPIDEM TARTRATE
  11. FERROUS SULFATE. [Concomitant]
     Active Substance: FERROUS SULFATE

REACTIONS (1)
  - Colon cancer [None]

NARRATIVE: CASE EVENT DATE: 20190719
